FAERS Safety Report 19416775 (Version 2)
Quarter: 2021Q2

REPORT INFORMATION
  Report Type: Spontaneous
  Country: JP (occurrence: JP)
  Receive Date: 20210614
  Receipt Date: 20210625
  Transmission Date: 20210717
  Serious: Yes (Other)
  Sender: FDA-Public Use
  Company Number: JP-GILEAD-2021-0532611

PATIENT
  Age: 81 Year
  Sex: Male
  Weight: 63 kg

DRUGS (9)
  1. VEKLURY [Suspect]
     Active Substance: REMDESIVIR
     Dosage: 100 MG, QD
     Route: 041
     Dates: start: 20210511, end: 20210514
  2. MADOPAR [Concomitant]
     Active Substance: BENSERAZIDE HYDROCHLORIDE\LEVODOPA
     Dosage: 3 DOSAGE FORM, TID
     Route: 048
     Dates: end: 20210523
  3. LIVACT [ISOLEUCINE;LEUCINE;VALINE] [Concomitant]
     Dosage: 3 DOSAGE FORM, TID
     Route: 048
     Dates: end: 20210523
  4. DECADRON [Concomitant]
     Active Substance: DEXAMETHASONE
     Dosage: 1.5 DOSAGE FORM, QD
     Route: 048
     Dates: start: 20210511, end: 20210518
  5. SPIRONOLACTONE. [Concomitant]
     Active Substance: SPIRONOLACTONE
     Dosage: 1 DOSAGE FORM, QD
     Route: 048
     Dates: end: 20210523
  6. LANSOPRAZOLE. [Concomitant]
     Active Substance: LANSOPRAZOLE
     Dosage: 1 DOSAGE FORM, QD
     Route: 048
     Dates: end: 20210523
  7. PREDONINE [PREDNISOLONE SODIUM SUCCINATE] [Concomitant]
     Active Substance: PREDNISOLONE SODIUM SUCCINATE
     Dosage: 20 MG, QD
     Route: 041
     Dates: start: 20210510, end: 20210510
  8. VEKLURY [Suspect]
     Active Substance: REMDESIVIR
     Indication: COVID-19
     Dosage: 200 MG, QD
     Route: 041
     Dates: start: 20210510, end: 20210510
  9. SODIUM CHLORIDE. [Concomitant]
     Active Substance: SODIUM CHLORIDE
     Dosage: 100 ML, QD
     Route: 041
     Dates: start: 20210510, end: 20210510

REACTIONS (2)
  - COVID-19 [Unknown]
  - Cytokine storm [Unknown]

NARRATIVE: CASE EVENT DATE: 20210524
